FAERS Safety Report 23965707 (Version 1)
Quarter: 2024Q2

REPORT INFORMATION
  Report Type: Spontaneous
  Country: US (occurrence: US)
  Receive Date: 20240612
  Receipt Date: 20240612
  Transmission Date: 20240715
  Serious: Yes (Other)
  Sender: FDA-Public Use
  Company Number: US-SANOFI-02081515

PATIENT
  Age: 72 Year
  Sex: Male

DRUGS (1)
  1. LANTUS SOLOSTAR [Suspect]
     Active Substance: INSULIN GLARGINE
     Indication: Type 2 diabetes mellitus
     Dosage: 20 IU, QD

REACTIONS (6)
  - Cerebrovascular accident [Unknown]
  - Myocardial infarction [Unknown]
  - Urinary bladder haemorrhage [Unknown]
  - Cataract [Unknown]
  - Cyst [Unknown]
  - Sciatica [Unknown]

NARRATIVE: CASE EVENT DATE: 20180101
